FAERS Safety Report 10306397 (Version 1)
Quarter: 2014Q3

REPORT INFORMATION
  Report Type: Spontaneous
  Country: HK (occurrence: HK)
  Receive Date: 20140715
  Receipt Date: 20140715
  Transmission Date: 20150326
  Serious: Yes (Other)
  Sender: FDA-Public Use
  Company Number: HK-WATSON-2014-15388

PATIENT
  Age: 56 Year
  Sex: Male

DRUGS (1)
  1. GENTAMICIN [Suspect]
     Active Substance: GENTAMICIN
     Indication: ANTIBIOTIC PROPHYLAXIS
     Dosage: UNK
     Route: 061

REACTIONS (1)
  - Mycobacterium abscessus infection [Unknown]

NARRATIVE: CASE EVENT DATE: 20100823
